FAERS Safety Report 18981867 (Version 2)
Quarter: 2021Q1

REPORT INFORMATION
  Report Type: Spontaneous
  Country: CA (occurrence: CA)
  Receive Date: 20210308
  Receipt Date: 20210325
  Transmission Date: 20210420
  Serious: No
  Sender: FDA-Public Use
  Company Number: CA-BAUSCH-BL-2021-007444

PATIENT
  Age: 73 Year
  Sex: Male

DRUGS (22)
  1. PREDNISONE. [Suspect]
     Active Substance: PREDNISONE
     Route: 048
  2. PANTOPRAZOLE [Concomitant]
     Active Substance: PANTOPRAZOLE
     Indication: PRODUCT USED FOR UNKNOWN INDICATION
  3. ROSUVASTATIN. [Concomitant]
     Active Substance: ROSUVASTATIN
     Indication: PRODUCT USED FOR UNKNOWN INDICATION
  4. METOPROLOL. [Concomitant]
     Active Substance: METOPROLOL
     Indication: PRODUCT USED FOR UNKNOWN INDICATION
  5. CEFTRIAXONE. [Concomitant]
     Active Substance: CEFTRIAXONE
     Indication: SINUSITIS
  6. DAPSONE. [Suspect]
     Active Substance: DAPSONE
     Indication: ACUTE FEBRILE NEUTROPHILIC DERMATOSIS
     Route: 065
  7. MEROPENEM. [Concomitant]
     Active Substance: MEROPENEM
     Indication: SINUSITIS
  8. KENALOG [Suspect]
     Active Substance: TRIAMCINOLONE ACETONIDE
     Indication: ACUTE FEBRILE NEUTROPHILIC DERMATOSIS
     Dosage: SUBTENONS
     Route: 065
  9. OZURDEX [Suspect]
     Active Substance: DEXAMETHASONE
     Indication: ACUTE FEBRILE NEUTROPHILIC DERMATOSIS
     Dosage: INTRAVITREAL
     Route: 031
  10. METFORMIN [Concomitant]
     Active Substance: METFORMIN HYDROCHLORIDE
     Indication: PRODUCT USED FOR UNKNOWN INDICATION
  11. PERINDOPRIL [Concomitant]
     Active Substance: PERINDOPRIL
     Indication: PRODUCT USED FOR UNKNOWN INDICATION
  12. VITAMIN D [Concomitant]
     Active Substance: VITAMIN D NOS
     Indication: PRODUCT USED FOR UNKNOWN INDICATION
  13. PREDNISONE. [Suspect]
     Active Substance: PREDNISONE
     Dosage: RE?STARTED
     Route: 048
  14. PREDNISONE. [Suspect]
     Active Substance: PREDNISONE
     Dosage: TAPERED AFTER 2 MONTHS
     Route: 048
  15. PREDNISONE. [Suspect]
     Active Substance: PREDNISONE
     Dosage: SLOW TAPER OVER 4 MONTHS AND DISCONTINUED
     Route: 048
  16. DAPSONE. [Suspect]
     Active Substance: DAPSONE
     Route: 065
  17. TAMSULOSIN [Concomitant]
     Active Substance: TAMSULOSIN
     Indication: PRODUCT USED FOR UNKNOWN INDICATION
  18. AZITHROMYCIN ANHYDROUS. [Concomitant]
     Active Substance: AZITHROMYCIN ANHYDROUS
     Indication: SINUSITIS
  19. PREDNISOLONE. [Suspect]
     Active Substance: PREDNISOLONE
     Indication: ACUTE FEBRILE NEUTROPHILIC DERMATOSIS
     Dosage: FOUR TIMES DAILY TO THE LEFT EYE
     Route: 061
  20. PREDNISONE. [Suspect]
     Active Substance: PREDNISONE
     Indication: ACUTE FEBRILE NEUTROPHILIC DERMATOSIS
     Route: 048
  21. INSULIN [Concomitant]
     Active Substance: INSULIN NOS
     Indication: PRODUCT USED FOR UNKNOWN INDICATION
  22. METRONIDAZOLE. [Concomitant]
     Active Substance: METRONIDAZOLE
     Indication: SINUSITIS

REACTIONS (1)
  - Therapy non-responder [Unknown]
